FAERS Safety Report 23118616 (Version 2)
Quarter: 2023Q4

REPORT INFORMATION
  Report Type: Spontaneous
  Country: CN (occurrence: CN)
  Receive Date: 20231028
  Receipt Date: 20231108
  Transmission Date: 20240109
  Serious: Yes (Death, Other)
  Sender: FDA-Public Use
  Company Number: CN-AMGEN-CHNSP2023190714

PATIENT

DRUGS (13)
  1. BLINCYTO [Suspect]
     Active Substance: BLINATUMOMAB
     Indication: B-cell type acute leukaemia
     Dosage: 28 DAYS
     Route: 065
  2. BLINCYTO [Suspect]
     Active Substance: BLINATUMOMAB
     Indication: Acute leukaemia
  3. VINCRISTINE [Concomitant]
     Active Substance: VINCRISTINE
     Indication: Acute leukaemia
  4. CYCLOPHOSPHAMIDE [Concomitant]
     Active Substance: CYCLOPHOSPHAMIDE
     Indication: Acute leukaemia
  5. IDARUBICIN [Concomitant]
     Active Substance: IDARUBICIN
     Indication: Acute leukaemia
  6. PREDNISONE [Concomitant]
     Active Substance: PREDNISONE
     Indication: Acute leukaemia
  7. PEGASPARGASE [Concomitant]
     Active Substance: PEGASPARGASE
     Indication: Acute leukaemia
  8. METHOTREXATE [Concomitant]
     Active Substance: METHOTREXATE
     Indication: Acute leukaemia
     Dosage: HIGH-DOSE
     Route: 029
  9. METHOTREXATE [Concomitant]
     Active Substance: METHOTREXATE
     Indication: Central nervous system leukaemia
  10. CYTARABINE [Concomitant]
     Active Substance: CYTARABINE
     Indication: Acute leukaemia
     Route: 029
  11. CYTARABINE [Concomitant]
     Active Substance: CYTARABINE
     Indication: Central nervous system leukaemia
  12. CYCLOPHOSPHAMIDE\CYTARABINE\DEXAMETHASONE\DOXORUBICIN\METHOTREXATE\VIN [Concomitant]
     Active Substance: CYCLOPHOSPHAMIDE\CYTARABINE\DEXAMETHASONE\DOXORUBICIN\METHOTREXATE\VINCRISTINE
     Indication: Acute leukaemia
  13. BUSULFAN [Concomitant]
     Active Substance: BUSULFAN
     Indication: Acute leukaemia

REACTIONS (16)
  - Leukaemic infiltration extramedullary [Unknown]
  - B-cell type acute leukaemia [Fatal]
  - Acute bilineal leukaemia [Fatal]
  - Central nervous system leukaemia [Unknown]
  - Liver injury [Unknown]
  - Shock [Unknown]
  - Pneumonia [Unknown]
  - Respiratory failure [Unknown]
  - Treatment failure [Unknown]
  - Pleural effusion [Unknown]
  - Arthralgia [Unknown]
  - Myalgia [Unknown]
  - Rash [Unknown]
  - Chills [Unknown]
  - Oedema [Unknown]
  - Pyrexia [Unknown]
